FAERS Safety Report 8176121-7 (Version None)
Quarter: 2012Q1

REPORT INFORMATION
  Report Type: 
  Country: None (occurrence: None)
  Receive Date: 20120301
  Receipt Date: 20120224
  Transmission Date: 20120608
  Serious: Yes (Death, Hospitalization)
  Sender: FDA-Public Use
  Company Number: US-AMGEN-USASP2012011255

PATIENT
  Age: 92 Year
  Sex: Female

DRUGS (24)
  1. HYDRALAZINE HCL [Concomitant]
  2. METOLAZONE [Concomitant]
  3. RAMIPRIL [Concomitant]
  4. SIMVASTATIN [Concomitant]
  5. PROLIA [Suspect]
     Indication: OSTEOPOROSIS
  6. PEPTO BISMOL                       /00139305/ [Concomitant]
  7. ZOFRAN [Concomitant]
     Indication: VOMITING
  8. ISOSORBIDE DINITRATE [Concomitant]
  9. VITAMIN D [Concomitant]
  10. BUMETANIDE [Concomitant]
     Indication: FLUID OVERLOAD
     Route: 048
  11. MILK OF MAGNESIA TAB [Concomitant]
     Indication: CONSTIPATION
     Dosage: 30 UNK, UNK
  12. ZOFRAN [Concomitant]
     Indication: NAUSEA
     Dosage: 4 MG, Q6H
  13. COREG [Concomitant]
  14. HYDROCODONE BITARTRATE AND ACETAMINOPHEN [Concomitant]
  15. MORPHINE [Concomitant]
     Indication: PAIN
     Dosage: 5 MG, PRN
     Route: 048
  16. IMODIUM [Concomitant]
     Indication: DIARRHOEA
     Dosage: 2 MG, UNK
  17. TYLENOL (CAPLET) [Concomitant]
     Dosage: 500 MG, Q4H
  18. ATROPINE [Concomitant]
     Dosage: 0.4 MG, UNK
  19. MYLANTA                            /00036701/ [Concomitant]
     Dosage: 2 UNK, QID
  20. TUSSIN                             /00048001/ [Concomitant]
  21. MORPHINE [Concomitant]
     Indication: AGITATION
  22. ALBUTEROL [Concomitant]
     Dosage: 2.5 MG, Q4H
  23. TRAZODONE HCL [Concomitant]
  24. ORPHENADRINE CITRATE [Concomitant]

REACTIONS (7)
  - CARDIAC FAILURE CONGESTIVE [None]
  - ATRIAL FIBRILLATION [None]
  - URINARY TRACT INFECTION [None]
  - ELECTROLYTE IMBALANCE [None]
  - PNEUMONIA [None]
  - SEPSIS [None]
  - RENAL FAILURE ACUTE [None]
